FAERS Safety Report 12712310 (Version 2)
Quarter: 2016Q3

REPORT INFORMATION
  Report Type: Spontaneous
  Country: ZA (occurrence: ZA)
  Receive Date: 20160902
  Receipt Date: 20160908
  Transmission Date: 20161109
  Serious: Yes (Other)
  Sender: FDA-Public Use
  Company Number: ZA-BAYER-2016-168072

PATIENT
  Age: 61 Year
  Sex: Male

DRUGS (5)
  1. AVASTIN [Concomitant]
     Active Substance: BEVACIZUMAB
  2. EVEROLIMUS [Concomitant]
     Active Substance: EVEROLIMUS
  3. TEMSIROLIMUS [Concomitant]
     Active Substance: TEMSIROLIMUS
  4. NEXAVAR [Suspect]
     Active Substance: SORAFENIB
     Indication: CLEAR CELL RENAL CELL CARCINOMA
     Dosage: UNK
     Route: 048
     Dates: start: 201502, end: 20150708
  5. PAZOPANIB [Concomitant]
     Active Substance: PAZOPANIB

REACTIONS (1)
  - Disease progression [None]
